FAERS Safety Report 4851904-7 (Version None)
Quarter: 2005Q4

REPORT INFORMATION
  Report Type: 
  Country: None (occurrence: None)
  Receive Date: 20051125
  Receipt Date: 20050901
  Transmission Date: 20060501
  Serious: Yes (Hospitalization)
  Sender: FDA-Public Use
  Company Number: US-JNJFOC-20050901067

PATIENT
  Age: 44 Year
  Sex: Female

DRUGS (1)
  1. LEVAQUIN [Suspect]
     Indication: DRUG USE FOR UNKNOWN INDICATION
     Dosage: 500 MG, 1 IN 1 DAY ORAL
     Route: 048

REACTIONS (3)
  - BRONCHIAL HYPERACTIVITY [None]
  - DYSPNOEA [None]
  - SWELLING FACE [None]
